FAERS Safety Report 15459285 (Version 1)
Quarter: 2018Q3

REPORT INFORMATION
  Report Type: Spontaneous
  Country: US (occurrence: US)
  Receive Date: 20180928
  Receipt Date: 20180928
  Transmission Date: 20181010
  Serious: Yes (Hospitalization)
  Sender: FDA-Public Use
  Company Number: None

PATIENT
  Age: 0 Day
  Sex: Female

DRUGS (1)
  1. MYCOPHENOLATE TAB 500MG ACCORD [Suspect]
     Active Substance: MYCOPHENOLIC ACID
     Indication: RENAL TRANSPLANT
     Route: 048
     Dates: start: 20180828, end: 20180921

REACTIONS (2)
  - Therapy cessation [None]
  - Neutropenia [None]

NARRATIVE: CASE EVENT DATE: 20180921
